FAERS Safety Report 9913518 (Version 4)
Quarter: 2014Q2

REPORT INFORMATION
  Report Type: Spontaneous
  Country: US (occurrence: US)
  Receive Date: 20140220
  Receipt Date: 20140415
  Transmission Date: 20141212
  Serious: Yes (Death)
  Sender: FDA-Public Use
  Company Number: US-PURDUE-USA-2014-0111308

PATIENT
  Sex: Male

DRUGS (2)
  1. OXYCONTIN (NDA 22-272) [Suspect]
     Indication: BACK PAIN
     Dosage: UNKNOWN
     Route: 048
  2. OXYCODONE [Suspect]
     Indication: PAIN
     Dosage: 20 MG/ML, 600 ML PER MONTH
     Route: 048

REACTIONS (1)
  - Death [Fatal]
